FAERS Safety Report 8180814-5 (Version None)
Quarter: 2012Q1

REPORT INFORMATION
  Report Type: 
  Country: None (occurrence: None)
  Receive Date: 20120302
  Receipt Date: 20120228
  Transmission Date: 20120608
  Serious: Yes (Hospitalization, Other)
  Sender: FDA-Public Use
  Company Number: BR-ABBOTT-12P-020-0902688-00

PATIENT
  Sex: Female
  Weight: 40 kg

DRUGS (4)
  1. HUMIRA [Suspect]
     Dosage: INDUCTION DOSE
     Route: 058
     Dates: start: 20090216
  2. AZATHIOPRINE [Concomitant]
     Indication: PRODUCT USED FOR UNKNOWN INDICATION
  3. HUMIRA [Suspect]
     Indication: CROHN'S DISEASE
     Route: 058
     Dates: start: 20080418, end: 20111003
  4. HUMIRA [Suspect]
     Route: 058
     Dates: start: 20111001

REACTIONS (8)
  - POSTOPERATIVE WOUND INFECTION [None]
  - SUTURE RUPTURE [None]
  - ARTHRALGIA [None]
  - GASTROINTESTINAL INFLAMMATION [None]
  - ANAEMIA [None]
  - FISTULA [None]
  - ARTHRITIS [None]
  - POSTOPERATIVE ABSCESS [None]
